FAERS Safety Report 10393129 (Version 1)
Quarter: 2014Q3

REPORT INFORMATION
  Report Type: Spontaneous
  Country: AU (occurrence: None)
  Receive Date: 20140815
  Receipt Date: 20140815
  Transmission Date: 20150326
  Serious: Yes (Other)
  Sender: FDA-Public Use
  Company Number: 2014HINLIT0704

PATIENT
  Age: 40 Year
  Sex: Male

DRUGS (6)
  1. STAVUDINE ( STAVUDINE) [Concomitant]
  2. CHOLECALCIFEROL ( CHOLECALCIFEROL) [Concomitant]
  3. ATAZANAVIR ( ATAZANAVIR) [Concomitant]
  4. FLUTICASONE [Suspect]
     Active Substance: FLUTICASONE\FLUTICASONE PROPIONATE
     Indication: ASTHMA
     Dosage: 250 MG TWICE DAILY, UNKNOWN
  5. ABACAVIR ( ABACAVIR) [Concomitant]
  6. LOPINAVIR + RITONAVIR (LOPINAVIR, RITONAVIR) UNKNOWN [Suspect]
     Active Substance: LOPINAVIR\RITONAVIR
     Indication: HIV INFECTION
     Dosage: 400/100 MG BD

REACTIONS (4)
  - Osteonecrosis [None]
  - Cushing^s syndrome [None]
  - Asthma [None]
  - Drug interaction [None]
